FAERS Safety Report 14148312 (Version 4)
Quarter: 2018Q2

REPORT INFORMATION
  Report Type: Spontaneous
  Country: FR (occurrence: FR)
  Receive Date: 20171101
  Receipt Date: 20180416
  Transmission Date: 20180711
  Serious: Yes (Hospitalization, Other)
  Sender: FDA-Public Use
  Company Number: FR-INCYTE CORPORATION-2017IN009261

PATIENT

DRUGS (16)
  1. ATORVASTATIN [Concomitant]
     Active Substance: ATORVASTATIN
     Indication: PRODUCT USED FOR UNKNOWN INDICATION
     Dosage: 20 MG, QD
     Route: 065
  2. JAKAVI [Suspect]
     Active Substance: RUXOLITINIB
     Indication: MYELOFIBROSIS
     Dosage: 15 MG, BID
     Route: 065
     Dates: start: 201706, end: 20170810
  3. HYDREA [Concomitant]
     Active Substance: HYDROXYUREA
     Indication: ESSENTIAL THROMBOCYTHAEMIA
     Dosage: 500 MG, UNK (1 DF IN THE MORNING AND 2 DFS IN THE EVENING)
     Route: 065
     Dates: start: 2007, end: 201707
  4. METFORMIN [Concomitant]
     Active Substance: METFORMIN HYDROCHLORIDE
     Indication: TYPE 2 DIABETES MELLITUS
     Dosage: 500 MG, BID
     Route: 065
     Dates: start: 201707
  5. NEBIVOLOL. [Concomitant]
     Active Substance: NEBIVOLOL
     Indication: PRODUCT USED FOR UNKNOWN INDICATION
     Dosage: 0.5 DF, QD (5 MG)
     Route: 065
  6. DIFFU-K [Concomitant]
     Active Substance: POTASSIUM CHLORIDE
     Indication: PRODUCT USED FOR UNKNOWN INDICATION
     Dosage: 4 DF, QD (2 DFS IN THE MORNING AND 2 DFS AT NOON)
     Route: 065
  7. ALLOPURINOL. [Concomitant]
     Active Substance: ALLOPURINOL
     Indication: PRODUCT USED FOR UNKNOWN INDICATION
     Dosage: 100 MG, QD
     Route: 065
  8. ARANESP [Concomitant]
     Active Substance: DARBEPOETIN ALFA
     Indication: PRODUCT USED FOR UNKNOWN INDICATION
     Dosage: 500 UG, QW (BETWEEN 26 AND 29 JUN 2017)
     Route: 065
  9. PANTOPRAZOLE [Concomitant]
     Active Substance: PANTOPRAZOLE
     Indication: PRODUCT USED FOR UNKNOWN INDICATION
     Dosage: 100 MG, QD
     Route: 065
  10. ZOPICLONE [Concomitant]
     Active Substance: ZOPICLONE
     Indication: PRODUCT USED FOR UNKNOWN INDICATION
     Dosage: 0.5 DF, QD (7.5 MG)
     Route: 065
  11. LEVOTHYROX [Concomitant]
     Active Substance: LEVOTHYROXINE
     Indication: PRODUCT USED FOR UNKNOWN INDICATION
     Dosage: 100 UG, UNK
     Route: 065
  12. FLECAINE [Concomitant]
     Active Substance: FLECAINIDE
     Indication: PRODUCT USED FOR UNKNOWN INDICATION
     Route: 065
  13. FUROSEMIDE. [Concomitant]
     Active Substance: FUROSEMIDE
     Indication: PRODUCT USED FOR UNKNOWN INDICATION
     Dosage: 40 MG, BID
     Route: 065
  14. ESCITALOPRAM [Concomitant]
     Active Substance: ESCITALOPRAM OXALATE
     Indication: DEPRESSION
     Dosage: 0.5 DF, QD (10 MG)
     Route: 065
  15. ZOPICLONE [Concomitant]
     Active Substance: ZOPICLONE
     Dosage: 0.5 DF, QD (7.5 MG)
     Route: 065
  16. ESCITALOPRAM [Concomitant]
     Active Substance: ESCITALOPRAM OXALATE
     Dosage: 5 MG, UNK

REACTIONS (49)
  - Pulmonary alveolar haemorrhage [Unknown]
  - Mitral valve incompetence [Unknown]
  - Oedema peripheral [Unknown]
  - Aortic arteriosclerosis [Unknown]
  - Bronchial disorder [Unknown]
  - Platelet count decreased [Unknown]
  - Blood uric acid increased [Unknown]
  - Dysuria [Unknown]
  - Ventricular hypokinesia [Unknown]
  - Depression [Unknown]
  - Haemoglobin decreased [Unknown]
  - Poikilocytosis [Unknown]
  - Renal impairment [Unknown]
  - Pulmonary hypertension [Unknown]
  - Tricuspid valve incompetence [Unknown]
  - Anaemia [Unknown]
  - Decreased appetite [Unknown]
  - Bilirubin conjugated increased [Unknown]
  - Dilatation atrial [Unknown]
  - Serum ferritin increased [Unknown]
  - Weight decreased [Unknown]
  - Blood sodium decreased [Unknown]
  - Acute myeloid leukaemia [Unknown]
  - Renal failure [Unknown]
  - Bone marrow reticulin fibrosis [Unknown]
  - Hepatic lesion [Unknown]
  - General physical condition abnormal [Unknown]
  - Asthenia [Unknown]
  - Blast cell count increased [Unknown]
  - Ejection fraction decreased [Unknown]
  - Blood bilirubin increased [Unknown]
  - Eschar [Unknown]
  - Dyspnoea [Unknown]
  - Stenosis [Unknown]
  - Prothrombin level decreased [Unknown]
  - Tachycardia [Unknown]
  - Cardiac failure [Not Recovered/Not Resolved]
  - Anisocytosis [Unknown]
  - Blood pressure decreased [Unknown]
  - Confusional state [Unknown]
  - N-terminal prohormone brain natriuretic peptide increased [Unknown]
  - Reticulocyte count increased [Unknown]
  - Troponin increased [Unknown]
  - Splenomegaly [Unknown]
  - C-reactive protein increased [Unknown]
  - Blood creatinine increased [Unknown]
  - Hepatomegaly [Unknown]
  - Blood lactate dehydrogenase increased [Unknown]
  - Prealbumin decreased [Unknown]

NARRATIVE: CASE EVENT DATE: 20170626
